FAERS Safety Report 5629424-1 (Version None)
Quarter: 2008Q1

REPORT INFORMATION
  Report Type: 
  Country: None (occurrence: None)
  Receive Date: 20080104
  Receipt Date: 20080104
  Transmission Date: 20080703
  Serious: Yes (Other)
  Sender: FDA-Public Use
  Company Number: None

PATIENT
  Sex: Female
  Weight: 66.2252 kg

DRUGS (1)
  1. PARAGARD T 380A [Suspect]
     Dates: start: 20071126, end: 20071217

REACTIONS (1)
  - URINE HUMAN CHORIONIC GONADOTROPIN POSITIVE [None]
